FAERS Safety Report 8072925-X (Version None)
Quarter: 2012Q1

REPORT INFORMATION
  Report Type: 
  Country: None (occurrence: None)
  Receive Date: 20120126
  Receipt Date: 20120119
  Transmission Date: 20120608
  Serious: No
  Sender: FDA-Public Use
  Company Number: US-PFIZER INC-2012017074

PATIENT
  Sex: Male

DRUGS (1)
  1. EFFEXOR [Suspect]
     Dosage: 75 MG, MORNING AND NIGHT FOR THE LAST 4-5 MONTHS

REACTIONS (1)
  - DRUG INEFFECTIVE [None]
